FAERS Safety Report 24984017 (Version 1)
Quarter: 2025Q1

REPORT INFORMATION
  Report Type: Other
  Country: GB (occurrence: GB)
  Receive Date: 20250219
  Receipt Date: 20250219
  Transmission Date: 20250409
  Serious: Yes (Hospitalization, Other)
  Sender: IPCA
  Company Number: GB-MHRA-ADR 27177111

PATIENT

DRUGS (16)
  1. LOPERAMIDE [Suspect]
     Active Substance: LOPERAMIDE
     Indication: Product used for unknown indication
     Route: 065
  2. COTRIMOXAZOLE [Suspect]
     Active Substance: SULFAMETHOXAZOLE\TRIMETHOPRIM
     Indication: Product used for unknown indication
     Route: 065
  3. METOCLOPRAMIDE [Suspect]
     Active Substance: METOCLOPRAMIDE
     Indication: Product used for unknown indication
     Route: 065
  4. REVLIMID [Suspect]
     Active Substance: LENALIDOMIDE
     Indication: Product used for unknown indication
     Route: 065
  5. REVLIMID [Suspect]
     Active Substance: LENALIDOMIDE
     Route: 065
  6. REVLIMID [Suspect]
     Active Substance: LENALIDOMIDE
     Route: 065
  7. DEXAMETHASONE [Suspect]
     Active Substance: DEXAMETHASONE
     Indication: Product used for unknown indication
     Route: 065
  8. NINLARO [Suspect]
     Active Substance: IXAZOMIB CITRATE
     Indication: Product used for unknown indication
     Route: 065
  9. XARELTO [Suspect]
     Active Substance: RIVAROXABAN
     Indication: Product used for unknown indication
     Route: 065
  10. XARELTO [Suspect]
     Active Substance: RIVAROXABAN
     Route: 065
  11. XARELTO [Suspect]
     Active Substance: RIVAROXABAN
     Route: 065
  12. CALCIUM CARBONATE\CHOLECALCIFEROL [Suspect]
     Active Substance: CALCIUM CARBONATE\CHOLECALCIFEROL
     Indication: Product used for unknown indication
     Route: 048
  13. ACYCLOVIR [Suspect]
     Active Substance: ACYCLOVIR
     Indication: Product used for unknown indication
     Route: 065
  14. ACYCLOVIR [Suspect]
     Active Substance: ACYCLOVIR
     Route: 065
  15. OMEPRAZOLE [Suspect]
     Active Substance: OMEPRAZOLE
     Indication: Product used for unknown indication
     Route: 065
  16. EPOETIN BETA [Suspect]
     Active Substance: ERYTHROPOIETIN
     Indication: Product used for unknown indication
     Route: 058

REACTIONS (15)
  - Cerebrovascular accident [Unknown]
  - Hypoaesthesia [Unknown]
  - Pyrexia [Unknown]
  - Decreased appetite [Unknown]
  - Neutrophil count abnormal [Unknown]
  - Balance disorder [Unknown]
  - Confusional state [Unknown]
  - Fall [Unknown]
  - Malaise [Unknown]
  - Limb discomfort [Unknown]
  - Gait disturbance [Unknown]
  - Musculoskeletal chest pain [Unknown]
  - Productive cough [Unknown]
  - Feeling cold [Unknown]
  - Chromaturia [Unknown]
